FAERS Safety Report 6217932-4 (Version None)
Quarter: 2009Q2

REPORT INFORMATION
  Report Type: 
  Country: None (occurrence: None)
  Receive Date: 20090604
  Receipt Date: 20090604
  Transmission Date: 20091009
  Serious: Yes (Life-Threatening, Disabling)
  Sender: FDA-Public Use
  Company Number: None

PATIENT
  Age: 49 Year
  Sex: Female
  Weight: 53.5244 kg

DRUGS (1)
  1. INSULIN PUMP [Suspect]
     Indication: TYPE 1 DIABETES MELLITUS
     Dates: start: 20040701, end: 20090528

REACTIONS (3)
  - DEPRESSED LEVEL OF CONSCIOUSNESS [None]
  - DRUG DELIVERY SYSTEM MALFUNCTION [None]
  - HYPOGLYCAEMIA [None]
